FAERS Safety Report 9550748 (Version 6)
Quarter: 2015Q4

REPORT INFORMATION
  Report Type: Report from Study
  Country: US (occurrence: US)
  Receive Date: 20130924
  Receipt Date: 20151007
  Transmission Date: 20160305
  Serious: Yes (Hospitalization, Other)
  Sender: FDA-Public Use
  Company Number: US-SANOFI-AVENTIS-2013SA047505

PATIENT
  Age: 62 Year
  Sex: Female

DRUGS (1)
  1. AUBAGIO [Suspect]
     Active Substance: TERIFLUNOMIDE
     Indication: MULTIPLE SCLEROSIS
     Route: 048
     Dates: start: 20130329

REACTIONS (9)
  - Multiple sclerosis [Not Recovered/Not Resolved]
  - Memory impairment [Unknown]
  - Asthenia [Unknown]
  - Colectomy [Unknown]
  - Bladder catheterisation [Unknown]
  - Fatigue [Unknown]
  - Diarrhoea [Unknown]
  - Gallbladder operation [Recovering/Resolving]
  - Disturbance in attention [Unknown]

NARRATIVE: CASE EVENT DATE: 2013
